FAERS Safety Report 19923588 (Version 3)
Quarter: 2022Q1

REPORT INFORMATION
  Report Type: Report from Study
  Country: BE (occurrence: BE)
  Receive Date: 20211005
  Receipt Date: 20220202
  Transmission Date: 20220423
  Serious: Yes (Other)
  Sender: FDA-Public Use
  Company Number: BE-NOVARTISPH-NVSC2021BE219985

PATIENT
  Age: 40 Year
  Sex: Male
  Weight: 83.3 kg

DRUGS (3)
  1. DEFERASIROX [Suspect]
     Active Substance: DEFERASIROX
     Indication: Iron overload
     Dosage: 360 MG, TID
     Route: 065
     Dates: end: 202011
  2. DEFERASIROX [Suspect]
     Active Substance: DEFERASIROX
     Indication: Acute myeloid leukaemia
     Dosage: 360 MG, TID
     Route: 048
     Dates: start: 20201207, end: 20210304
  3. DEFERASIROX [Suspect]
     Active Substance: DEFERASIROX
     Dosage: 360 MG, QD
     Route: 048
     Dates: start: 20210415

REACTIONS (3)
  - Hepatic cytolysis [Recovering/Resolving]
  - Alanine aminotransferase increased [Unknown]
  - Aspartate aminotransferase increased [Recovering/Resolving]

NARRATIVE: CASE EVENT DATE: 20210304
